FAERS Safety Report 22606245 (Version 1)
Quarter: 2023Q2

REPORT INFORMATION
  Report Type: Spontaneous
  Country: US (occurrence: US)
  Receive Date: 20230615
  Receipt Date: 20230615
  Transmission Date: 20230721
  Serious: No
  Sender: FDA-Public Use
  Company Number: US-SANOFI-01649602

PATIENT
  Age: 86 Year
  Sex: Female

DRUGS (1)
  1. MULTAQ [Suspect]
     Active Substance: DRONEDARONE
     Dosage: 400 MG, Q12H
     Dates: start: 20230317

REACTIONS (5)
  - Blood pressure increased [Unknown]
  - Dehydration [Unknown]
  - Tremor [Unknown]
  - Malaise [Unknown]
  - Heart rate decreased [Unknown]
